FAERS Safety Report 13160931 (Version 4)
Quarter: 2019Q1

REPORT INFORMATION
  Report Type: Spontaneous
  Country: GB (occurrence: GB)
  Receive Date: 20170130
  Receipt Date: 20190112
  Transmission Date: 20190417
  Serious: Yes (Hospitalization, Other)
  Sender: FDA-Public Use
  Company Number: GB-ACCORD-047879

PATIENT
  Age: 69 Year
  Sex: Male

DRUGS (1)
  1. CLOPIDOGREL [Suspect]
     Active Substance: CLOPIDOGREL BISULFATE
     Indication: CEREBROVASCULAR ACCIDENT PROPHYLAXIS

REACTIONS (7)
  - Gastrointestinal necrosis [Recovered/Resolved]
  - Haemoglobin decreased [Unknown]
  - Retroperitoneal haematoma [Recovering/Resolving]
  - Peritonitis [Recovered/Resolved]
  - Rectal perforation [Recovered/Resolved]
  - Intestinal ischaemia [Recovering/Resolving]
  - Sepsis [Recovered/Resolved]
